FAERS Safety Report 6661531-7 (Version None)
Quarter: 2010Q1

REPORT INFORMATION
  Report Type: 
  Country: None (occurrence: None)
  Receive Date: 20100331
  Receipt Date: 20100319
  Transmission Date: 20100710
  Serious: Yes (Hospitalization)
  Sender: FDA-Public Use
  Company Number: US-PFIZER INC-2010015626

PATIENT
  Sex: Male
  Weight: 158.73 kg

DRUGS (2)
  1. GEODON [Suspect]
     Indication: BIPOLAR DISORDER
     Dosage: 120 MG, 2X/DAY
     Route: 048
     Dates: start: 20030401
  2. GEODON [Suspect]
     Indication: SCHIZOAFFECTIVE DISORDER

REACTIONS (2)
  - ABNORMAL BEHAVIOUR [None]
  - HYPERSEXUALITY [None]
